FAERS Safety Report 6600197-9 (Version None)
Quarter: 2010Q1

REPORT INFORMATION
  Report Type: 
  Country: None (occurrence: None)
  Receive Date: 20100224
  Receipt Date: 20100215
  Transmission Date: 20100710
  Serious: Yes (Hospitalization)
  Sender: FDA-Public Use
  Company Number: B0634725A

PATIENT
  Age: 77 Year
  Sex: Female

DRUGS (4)
  1. PAXIL [Suspect]
     Indication: DRUG USE FOR UNKNOWN INDICATION
     Route: 048
  2. MILNACIPRAN HYDROCHLORIDE [Concomitant]
     Route: 048
  3. MIANSERIN HYDROCHLORIDE [Concomitant]
     Route: 048
  4. QUETIAPINE FUMARATE [Concomitant]
     Route: 048

REACTIONS (15)
  - ABDOMINAL PAIN [None]
  - AMNESIA [None]
  - APATHY [None]
  - BALANCE DISORDER [None]
  - COGNITIVE DISORDER [None]
  - DECREASED APPETITE [None]
  - DISORIENTATION [None]
  - FACIAL PAIN [None]
  - FALL [None]
  - INSOMNIA [None]
  - MALAISE [None]
  - OBSESSIVE-COMPULSIVE DISORDER [None]
  - POLLAKIURIA [None]
  - PORIOMANIA [None]
  - TENSION [None]
